FAERS Safety Report 25155819 (Version 1)
Quarter: 2025Q2

REPORT INFORMATION
  Report Type: Spontaneous
  Country: IT (occurrence: IT)
  Receive Date: 20250403
  Receipt Date: 20250403
  Transmission Date: 20250716
  Serious: Yes (Other)
  Sender: AMGEN
  Company Number: IT-AMGEN-ITASP2025061081

PATIENT

DRUGS (1)
  1. PROLIA [Suspect]
     Active Substance: DENOSUMAB
     Indication: Osteoporosis postmenopausal
     Route: 065

REACTIONS (5)
  - Femur fracture [Unknown]
  - Spinal fracture [Unknown]
  - Osteoporotic fracture [Unknown]
  - Fracture [Unknown]
  - Treatment failure [Unknown]
